FAERS Safety Report 11145789 (Version 1)
Quarter: 2015Q2

REPORT INFORMATION
  Report Type: Spontaneous
  Country: FR (occurrence: FR)
  Receive Date: 20150528
  Receipt Date: 20150528
  Transmission Date: 20150821
  Serious: Yes (Hospitalization)
  Sender: FDA-Public Use
  Company Number: FR-009507513-1505FRA011638

PATIENT
  Age: 5 Year
  Sex: Female
  Weight: 18.4 kg

DRUGS (1)
  1. GRAZAX [Suspect]
     Active Substance: PHLEUM PRATENSE POLLEN
     Indication: SEASONAL ALLERGY
     Dosage: 75000 SQ-T, DAILY
     Route: 060
     Dates: start: 201112

REACTIONS (3)
  - Erythema [Recovered/Resolved]
  - Oral allergy syndrome [Recovered/Resolved]
  - Laryngeal discomfort [Recovered/Resolved]

NARRATIVE: CASE EVENT DATE: 20120115
